FAERS Safety Report 6746130-0 (Version None)
Quarter: 2010Q2

REPORT INFORMATION
  Report Type: 
  Country: None (occurrence: None)
  Receive Date: 20100528
  Receipt Date: 20100209
  Transmission Date: 20101027
  Serious: No
  Sender: FDA-Public Use
  Company Number: US-ASTRAZENECA-2010SE05779

PATIENT
  Age: 74 Year
  Sex: Female

DRUGS (2)
  1. PRILOSEC [Suspect]
     Route: 048
  2. ATENOLOL [Suspect]

REACTIONS (3)
  - HYPOAESTHESIA FACIAL [None]
  - NAUSEA [None]
  - RASH [None]
